FAERS Safety Report 21726207 (Version 1)
Quarter: 2022Q4

REPORT INFORMATION
  Report Type: Report from Study
  Country: QA (occurrence: QA)
  Receive Date: 20221214
  Receipt Date: 20221214
  Transmission Date: 20230112
  Serious: Yes (Other)
  Sender: FDA-Public Use
  Company Number: QA-JNJFOC-20221217117

PATIENT
  Age: 41 Year
  Sex: Male

DRUGS (1)
  1. REMICADE [Suspect]
     Active Substance: INFLIXIMAB
     Indication: Crohn^s disease
     Route: 041
     Dates: start: 20210812, end: 202212

REACTIONS (2)
  - Ileectomy [Not Recovered/Not Resolved]
  - Colostomy [Not Recovered/Not Resolved]

NARRATIVE: CASE EVENT DATE: 20221201
